FAERS Safety Report 12155313 (Version 1)
Quarter: 2016Q1

REPORT INFORMATION
  Report Type: Spontaneous
  Country: CH (occurrence: CH)
  Receive Date: 20160307
  Receipt Date: 20160307
  Transmission Date: 20160526
  Serious: Yes (Other)
  Sender: FDA-Public Use
  Company Number: CH-LPDUSPRD-20120804

PATIENT
  Age: 60 Year
  Sex: Female
  Weight: 65.8 kg

DRUGS (2)
  1. FERRO-SANOL DUODENAL [Suspect]
     Active Substance: FERROUS GLYCINE SULFATE
     Dosage: 1 DOSE, 3X/WK, ORAL
     Route: 048
     Dates: start: 20120127, end: 20120201
  2. FERINJECT [Suspect]
     Active Substance: FERRIC CARBOXYMALTOSE
     Dosage: 1 DOSAGE FORM
     Route: 042
     Dates: start: 20120207, end: 20120207

REACTIONS (10)
  - Body temperature increased [Unknown]
  - Constipation [Unknown]
  - Headache [Unknown]
  - Dysarthria [Unknown]
  - Blood pressure increased [Unknown]
  - Pruritus [Unknown]
  - Nausea [Unknown]
  - Vomiting [Unknown]
  - Dysgeusia [Unknown]
  - Migraine [Unknown]

NARRATIVE: CASE EVENT DATE: 20120130
